FAERS Safety Report 19742367 (Version 3)
Quarter: 2021Q3

REPORT INFORMATION
  Report Type: Report from Study
  Country: KR (occurrence: KR)
  Receive Date: 20210825
  Receipt Date: 20210909
  Transmission Date: 20211014
  Serious: Yes (Death)
  Sender: FDA-Public Use
  Company Number: NVSC2021KR190987

PATIENT
  Age: 74 Year
  Sex: Female
  Weight: 63.3 kg

DRUGS (21)
  1. MUTERAN [Concomitant]
     Active Substance: ACETYLCYSTEINE
     Indication: PROPHYLAXIS
     Dosage: 400 MG
     Route: 065
     Dates: start: 20210614, end: 20210620
  2. PHOSTEN [Concomitant]
     Indication: PROPHYLAXIS
     Dosage: 20 ML (VIAL)
     Route: 065
     Dates: start: 20210615, end: 20210615
  3. PHOSTEN [Concomitant]
     Dosage: 20 ML (VIAL)
     Route: 065
     Dates: start: 20210617, end: 20210617
  4. RIBOCICLIB. [Suspect]
     Active Substance: RIBOCICLIB
     Indication: BREAST CANCER METASTATIC
     Dosage: 600 MG
     Route: 048
     Dates: start: 20210615, end: 20210728
  5. LASIX [Concomitant]
     Active Substance: FUROSEMIDE
     Indication: PROPHYLAXIS
     Dosage: 20 MG
     Route: 065
     Dates: start: 20210609, end: 20210618
  6. MONOFER [Concomitant]
     Active Substance: IRON ISOMALTOSIDE 1000
     Indication: PROPHYLAXIS
     Dosage: 2 DF (AMP)
     Route: 065
     Dates: start: 20210713, end: 20210713
  7. DUPHALAC EASY [Concomitant]
     Active Substance: LACTULOSE
     Indication: CONSTIPATION
     Dosage: 30 ML
     Route: 065
     Dates: start: 20210619, end: 20210619
  8. MOTILIDONE [Concomitant]
     Indication: PROPHYLAXIS
     Dosage: 3 DF
     Route: 065
     Dates: start: 20210605, end: 20210621
  9. SUPRAX [Concomitant]
     Active Substance: CEFIXIME
     Indication: PROPHYLAXIS
     Dosage: 200 MG (DONGA)
     Route: 065
     Dates: start: 20210621, end: 20210628
  10. DENOGAN [Concomitant]
     Active Substance: PROPACETAMOL HYDROCHLORIDE
     Indication: PYREXIA
     Dosage: 1 G
     Route: 065
     Dates: start: 20210615, end: 20210621
  11. TRESTAN [Concomitant]
     Indication: DECREASED APPETITE
     Dosage: 2 DF
     Route: 065
     Dates: start: 20210607, end: 20210621
  12. LYRICA [Concomitant]
     Active Substance: PREGABALIN
     Indication: BONE PAIN
     Dosage: 50 MG
     Route: 065
     Dates: start: 20210607, end: 20210716
  13. TAZOPERAN [Concomitant]
     Indication: URINARY TRACT INFECTION
     Dosage: 13.5 G
     Route: 065
     Dates: start: 20210614, end: 20210617
  14. CACEPIN [Concomitant]
     Indication: INSOMNIA
     Dosage: 12.5 MG
     Route: 065
     Dates: start: 20210616, end: 20210620
  15. FEMARA [Concomitant]
     Active Substance: LETROZOLE
     Indication: BREAST CANCER
     Dosage: 2.5 MG
     Route: 065
     Dates: start: 20210615, end: 20210713
  16. MORPHINE SULFATE DAEWON [Concomitant]
     Active Substance: MORPHINE SULFATE
     Indication: BONE PAIN
     Dosage: 3 MG
     Route: 065
     Dates: start: 20210615, end: 20210616
  17. LIPITOR [Concomitant]
     Active Substance: ATORVASTATIN CALCIUM
     Indication: HYPERTENSION
     Dosage: 10 MG
     Route: 065
     Dates: start: 20210605, end: 20210616
  18. FEROBA?YOU [Concomitant]
     Indication: ANAEMIA
     Dosage: 2 DF
     Route: 065
     Dates: start: 20210609, end: 20210620
  19. TRAJENTA [Concomitant]
     Active Substance: LINAGLIPTIN
     Indication: DIABETES MELLITUS
     Dosage: 5 MG
     Route: 065
     Dates: start: 20210605, end: 20210621
  20. AMODIPIN [Concomitant]
     Indication: HYPERTENSION
     Dosage: 5 MG
     Route: 065
     Dates: start: 20210605, end: 20210621
  21. CADUET [Concomitant]
     Active Substance: AMLODIPINE BESYLATE\ATORVASTATIN CALCIUM
     Indication: PROPHYLAXIS
     Dosage: 1 DF
     Route: 065
     Dates: start: 20210621

REACTIONS (2)
  - Asthenia [Fatal]
  - Hyperglycaemia [Fatal]

NARRATIVE: CASE EVENT DATE: 20210728
